FAERS Safety Report 14189852 (Version 2)
Quarter: 2018Q2

REPORT INFORMATION
  Report Type: Spontaneous
  Country: US (occurrence: US)
  Receive Date: 20171115
  Receipt Date: 20180502
  Transmission Date: 20180711
  Serious: Yes (Hospitalization)
  Sender: FDA-Public Use
  Company Number: US-PFIZER INC-2017488211

PATIENT
  Age: 33 Year
  Sex: Female

DRUGS (2)
  1. XELJANZ [Suspect]
     Active Substance: TOFACITINIB CITRATE
     Indication: RHEUMATOID ARTHRITIS
     Dosage: 5 MG, 2X/DAY
     Route: 048
     Dates: start: 20171103, end: 20171109
  2. LEFLUNOMIDE. [Suspect]
     Active Substance: LEFLUNOMIDE
     Dosage: UNK
     Dates: end: 20171102

REACTIONS (16)
  - Aggression [Unknown]
  - Dizziness [Unknown]
  - Migraine [Unknown]
  - Vomiting [Unknown]
  - Decreased appetite [Unknown]
  - Abdominal discomfort [Unknown]
  - Nausea [Unknown]
  - Hot flush [Unknown]
  - Condition aggravated [Unknown]
  - Headache [Unknown]
  - Photophobia [Unknown]
  - Mood swings [Unknown]
  - Hypersensitivity [Unknown]
  - Sleep terror [Unknown]
  - Fatigue [Unknown]
  - Nightmare [Unknown]

NARRATIVE: CASE EVENT DATE: 201711
